FAERS Safety Report 20596422 (Version 1)
Quarter: 2022Q1

REPORT INFORMATION
  Report Type: Spontaneous
  Country: US (occurrence: None)
  Receive Date: 20220315
  Receipt Date: 20220315
  Transmission Date: 20220424
  Serious: Yes (Hospitalization)
  Sender: FDA-Public Use
  Company Number: None

PATIENT
  Sex: Female

DRUGS (8)
  1. GILENYA [Suspect]
     Active Substance: FINGOLIMOD HYDROCHLORIDE
     Indication: Multiple sclerosis
     Dosage: FREQUENCY : DAILY;?
     Route: 048
     Dates: start: 20150903
  2. ADVIL CAP [Concomitant]
  3. FOLIC ACID [Concomitant]
     Active Substance: FOLIC ACID
  4. LAMOTRIGINE [Concomitant]
     Active Substance: LAMOTRIGINE
  5. LARIN FE TAB [Concomitant]
  6. MULTIVITAMIN TAB DAILY [Concomitant]
  7. SUPER B COMP TAB [Concomitant]
  8. VIMPAT TAB [Concomitant]

REACTIONS (2)
  - Therapy interrupted [None]
  - Hospitalisation [None]
